FAERS Safety Report 6411954-6 (Version None)
Quarter: 2009Q4

REPORT INFORMATION
  Report Type: 
  Country: None (occurrence: None)
  Receive Date: 20091020
  Receipt Date: 20091007
  Transmission Date: 20100525
  Serious: Yes (Hospitalization)
  Sender: FDA-Public Use
  Company Number: 2009AC000203

PATIENT
  Age: 38 Year
  Sex: Male

DRUGS (10)
  1. DIGOXIN [Suspect]
     Dosage: 0.125 MG;QD;PO
     Route: 048
     Dates: start: 20050501
  2. DIGOXIN [Suspect]
     Dosage: 0.25 MG; PO
     Route: 048
  3. THIAMINE HYDROCHLORIDE [Concomitant]
  4. PHENOBARBITAL [Concomitant]
  5. DILANTIN [Concomitant]
  6. METOCLOPRAMIDE [Concomitant]
  7. TRIAZOLAM [Concomitant]
  8. FOLIC ACID [Concomitant]
  9. LOVENOX [Concomitant]
  10. ASPIRIN [Concomitant]

REACTIONS (14)
  - ANXIETY [None]
  - ARTHRALGIA [None]
  - ATAXIA [None]
  - CONVULSION [None]
  - ECONOMIC PROBLEM [None]
  - HEAD INJURY [None]
  - HIP ARTHROPLASTY [None]
  - ILL-DEFINED DISORDER [None]
  - MULTIPLE INJURIES [None]
  - ORTHOSIS USER [None]
  - PAIN [None]
  - SUBDURAL HAEMATOMA [None]
  - SURGERY [None]
  - URINARY RETENTION [None]
